FAERS Safety Report 4906991-4 (Version None)
Quarter: 2006Q1

REPORT INFORMATION
  Report Type: 
  Country: None (occurrence: None)
  Receive Date: 20060207
  Receipt Date: 20060120
  Transmission Date: 20060701
  Serious: Yes (Other)
  Sender: FDA-Public Use
  Company Number: US200601003709

PATIENT
  Age: 64 Year
  Sex: Female

DRUGS (6)
  1. CYMBALTA [Suspect]
     Indication: PAIN
     Dosage: 30 MG, DAILY (1/D),
     Dates: start: 20050801
  2. ARTHROTEC [Concomitant]
  3. LIPITOR [Concomitant]
  4. ZETIA [Concomitant]
  5. NEXIUM [Concomitant]
  6. ESTROGEN NOS (ESTROGEN NOS) [Concomitant]

REACTIONS (6)
  - ARTHROPATHY [None]
  - DISSOCIATION [None]
  - JOINT SWELLING [None]
  - LOSS OF CONSCIOUSNESS [None]
  - NAUSEA [None]
  - TREMOR [None]
